FAERS Safety Report 14996259 (Version 1)
Quarter: 2018Q2

REPORT INFORMATION
  Report Type: Spontaneous
  Country: ES (occurrence: ES)
  Receive Date: 20180611
  Receipt Date: 20180611
  Transmission Date: 20180711
  Serious: Yes (Hospitalization, Other)
  Sender: FDA-Public Use
  Company Number: ES-NOVOPROD-603676

PATIENT
  Age: 3 Year
  Sex: Female

DRUGS (2)
  1. NOVOSEVEN [Suspect]
     Active Substance: COAGULATION FACTOR VIIA RECOMBINANT HUMAN
     Indication: VON WILLEBRAND^S DISEASE
     Dosage: 90-120 MCG/KG/2-3 HRS
     Route: 065
     Dates: start: 2017
  2. TRANEXAMIC ACID. [Concomitant]
     Active Substance: TRANEXAMIC ACID
     Indication: PRODUCT USED FOR UNKNOWN INDICATION
     Dosage: UNK
     Route: 065

REACTIONS (7)
  - Haemarthrosis [Unknown]
  - Fall [Unknown]
  - Haemorrhage [Recovered/Resolved]
  - Off label use [Unknown]
  - Epistaxis [Unknown]
  - Haematoma [Unknown]
  - Epistaxis [Recovered/Resolved]
